FAERS Safety Report 24326284 (Version 1)
Quarter: 2024Q3

REPORT INFORMATION
  Report Type: Spontaneous
  Country: EG (occurrence: EG)
  Receive Date: 20240917
  Receipt Date: 20240917
  Transmission Date: 20241016
  Serious: Yes (Other)
  Sender: HIKMA
  Company Number: EG-HIKMA PHARMACEUTICALS USA INC.-EG-H14001-24-08501

PATIENT
  Age: 37 Year
  Sex: Female
  Weight: 45 kg

DRUGS (3)
  1. HERCEPTIN [Suspect]
     Active Substance: TRASTUZUMAB
     Indication: Breast cancer metastatic
     Dosage: 270 MILLIGRAM, 3W
     Route: 041
     Dates: start: 20240526
  2. PACLITAXEL [Suspect]
     Active Substance: PACLITAXEL
     Indication: Breast cancer metastatic
     Dosage: 240 MILLIGRAM, 3W
     Route: 041
     Dates: start: 20240526
  3. CISPLATIN [Suspect]
     Active Substance: CISPLATIN
     Indication: Breast cancer metastatic
     Dosage: 100 MILLIGRAM, 3W
     Route: 041
     Dates: start: 20240526

REACTIONS (3)
  - Abdominal pain [Recovered/Resolved]
  - Vomiting [Recovered/Resolved]
  - Neuropathy peripheral [Recovered/Resolved]

NARRATIVE: CASE EVENT DATE: 20240617
